FAERS Safety Report 8120559-0 (Version None)
Quarter: 2012Q1

REPORT INFORMATION
  Report Type: 
  Country: None (occurrence: None)
  Receive Date: 20120207
  Receipt Date: 20120201
  Transmission Date: 20120608
  Serious: Yes (Death, Life-Threatening, Hospitalization, Other)
  Sender: FDA-Public Use
  Company Number: IR-ROXANE LABORATORIES, INC.-2012-RO-00574RO

PATIENT
  Age: 35 Year
  Sex: Female

DRUGS (4)
  1. AZATHIOPRINE [Suspect]
     Indication: ANTIPHOSPHOLIPID SYNDROME
     Dosage: 100 MG
  2. PREDNISOLONE [Suspect]
     Indication: ANTIPHOSPHOLIPID SYNDROME
     Dosage: 60 MG
  3. GLUCOSE LOWERING AGENTS [Suspect]
     Indication: HYPERGLYCAEMIA
     Route: 048
  4. WARFARIN SODIUM [Suspect]
     Indication: ANTIPHOSPHOLIPID SYNDROME

REACTIONS (8)
  - LUNG INFILTRATION [None]
  - SPOROTRICHOSIS [None]
  - HYPERGLYCAEMIA [None]
  - ATRIAL TACHYCARDIA [None]
  - MULTI-ORGAN FAILURE [None]
  - PULMONARY CAVITATION [None]
  - HAEMODYNAMIC INSTABILITY [None]
  - ANTIPHOSPHOLIPID SYNDROME [None]
